FAERS Safety Report 22341418 (Version 2)
Quarter: 2023Q2

REPORT INFORMATION
  Report Type: Spontaneous
  Country: US (occurrence: US)
  Receive Date: 20230518
  Receipt Date: 20230529
  Transmission Date: 20230722
  Serious: Yes (Other)
  Sender: FDA-Public Use
  Company Number: US-SA-SAC20230518000484

PATIENT
  Age: 78 Year
  Sex: Male
  Weight: 191 kg

DRUGS (1)
  1. FLOMAX [Suspect]
     Active Substance: TAMSULOSIN HYDROCHLORIDE
     Indication: Benign prostatic hyperplasia
     Dosage: 0.4 MG, QD
     Route: 065
     Dates: start: 20230310

REACTIONS (8)
  - Syncope [Not Recovered/Not Resolved]
  - Myalgia [Unknown]
  - Dysphagia [Not Recovered/Not Resolved]
  - Blood pressure decreased [Unknown]
  - Insomnia [Unknown]
  - Vision blurred [Not Recovered/Not Resolved]
  - Dizziness [Unknown]
  - Product use complaint [Unknown]

NARRATIVE: CASE EVENT DATE: 20230310
